FAERS Safety Report 13795565 (Version 4)
Quarter: 2017Q4

REPORT INFORMATION
  Report Type: Spontaneous
  Country: US (occurrence: US)
  Receive Date: 20170726
  Receipt Date: 20171109
  Transmission Date: 20180320
  Serious: Yes (Other)
  Sender: FDA-Public Use
  Company Number: US-009507513-1707USA010243

PATIENT
  Age: 31 Year
  Sex: Female
  Weight: 86.17 kg

DRUGS (2)
  1. FLONASE [Concomitant]
     Active Substance: FLUTICASONE PROPIONATE
     Dosage: UNK
  2. NEXPLANON [Suspect]
     Active Substance: ETONOGESTREL
     Indication: CONTRACEPTION
     Dosage: 1 ROD EVERY 3 YEARS
     Route: 059
     Dates: start: 20170518, end: 2017

REACTIONS (4)
  - Staphylococcal infection [Recovered/Resolved]
  - Implant site discharge [Not Recovered/Not Resolved]
  - Implant site extravasation [Not Recovered/Not Resolved]
  - Implant site infection [Recovered/Resolved]

NARRATIVE: CASE EVENT DATE: 2017
